FAERS Safety Report 14551328 (Version 1)
Quarter: 2018Q1

REPORT INFORMATION
  Report Type: Spontaneous
  Country: US (occurrence: US)
  Receive Date: 20180220
  Receipt Date: 20180220
  Transmission Date: 20180509
  Serious: Yes (Death, Other)
  Sender: FDA-Public Use
  Company Number: US-CIPLA LTD.-2018US03264

PATIENT

DRUGS (2)
  1. CARBOPLATIN. [Suspect]
     Active Substance: CARBOPLATIN
     Indication: ENDOMETRIAL ADENOCARCINOMA
     Dosage: UNK, 5 CYCLES
     Route: 042
     Dates: end: 201705
  2. PACLITAXEL. [Suspect]
     Active Substance: PACLITAXEL
     Indication: CHOROID NEOPLASM
     Dosage: UNK, 5 CYCLES
     Route: 065
     Dates: end: 201705

REACTIONS (4)
  - General physical health deterioration [Unknown]
  - Metastases to central nervous system [Unknown]
  - Neuropathy peripheral [Unknown]
  - Death [Fatal]

NARRATIVE: CASE EVENT DATE: 201709
